FAERS Safety Report 7421036-2 (Version None)
Quarter: 2011Q2

REPORT INFORMATION
  Report Type: 
  Country: None (occurrence: None)
  Receive Date: 20110418
  Receipt Date: 20110408
  Transmission Date: 20111010
  Serious: Yes (Hospitalization)
  Sender: FDA-Public Use
  Company Number: US-PURDUE-USA-2011-0066612

PATIENT
  Sex: Female

DRUGS (1)
  1. SENOKOT [Suspect]
     Indication: CONSTIPATION
     Dosage: UNK
     Route: 048
     Dates: start: 20110308, end: 20110308

REACTIONS (7)
  - DECUBITUS ULCER [None]
  - OROPHARYNGEAL BLISTERING [None]
  - FAECAL INCONTINENCE [None]
  - PHARYNGEAL OEDEMA [None]
  - DYSPNOEA [None]
  - BLOOD PRESSURE INCREASED [None]
  - FLATULENCE [None]
